FAERS Safety Report 5235888-8 (Version None)
Quarter: 2007Q1

REPORT INFORMATION
  Report Type: 
  Country: None (occurrence: None)
  Receive Date: 20061208
  Receipt Date: 20051222
  Transmission Date: 20070707
  Serious: Yes (Other)
  Sender: FDA-Public Use
  Company Number: 2005UW19274

PATIENT
  Age: 73 Year
  Sex: Male
  Weight: 99.79 kg

DRUGS (7)
  1. CRESTOR [Suspect]
     Indication: HYPERCHOLESTEROLAEMIA
     Dosage: 10 MG QD PO
     Route: 048
  2. DIGOXIN [Concomitant]
  3. COUMADIN [Concomitant]
  4. FOLATE [Concomitant]
  5. LOTREL [Concomitant]
  6. COREG [Concomitant]
  7. VITAMINS [Concomitant]

REACTIONS (1)
  - PLATELET COUNT DECREASED [None]
